FAERS Safety Report 16618442 (Version 1)
Quarter: 2019Q3

REPORT INFORMATION
  Report Type: Spontaneous
  Country: DE (occurrence: DE)
  Receive Date: 20190723
  Receipt Date: 20190723
  Transmission Date: 20191004
  Serious: Yes (Hospitalization)
  Sender: FDA-Public Use
  Company Number: DE-SA-2019SA190187

PATIENT
  Age: 87 Year
  Sex: Male

DRUGS (9)
  1. MOVICOL [MACROGOL;POTASSIUM CHLORIDE;SODIUM BICARBONATE;SODIUM CHLORID [Concomitant]
     Dosage: UNK MG, QD (1-0-0-0)
  2. ESBRIET [Concomitant]
     Active Substance: PIRFENIDONE
     Dosage: 801 MG, TID (1-1-1-0)
  3. OXYCODON [Concomitant]
     Active Substance: OXYCODONE
     Dosage: 5 MG, TID (1-1-1-0)
  4. CANDESARTAN. [Concomitant]
     Active Substance: CANDESARTAN
     Dosage: 16 MG, QD (1-0-0-0)
  5. METAMIZOL [Concomitant]
     Active Substance: METAMIZOLE SODIUM
     Dosage: 500 MG, QID (1-1-1-1)
  6. ENOXAPARIN SODIUM. [Suspect]
     Active Substance: ENOXAPARIN SODIUM
     Dosage: 0.6 MG, BID (1-0-1-0)
  7. NEUREXAN [Concomitant]
     Active Substance: HOMEOPATHICS
     Dosage: UNK MG, QD (1-0-0-0)
  8. IBUPROFEN. [Suspect]
     Active Substance: IBUPROFEN
     Dosage: UNK MG, PRN
  9. VERTIGOHEEL [HOMEOPATHICS NOS] [Concomitant]
     Dosage: UNK MG, QD (1-0-0-0)

REACTIONS (5)
  - Renal impairment [Unknown]
  - General physical health deterioration [Unknown]
  - Vomiting [Unknown]
  - Anaemia [Unknown]
  - Nausea [Unknown]
